FAERS Safety Report 11573451 (Version 2)
Quarter: 2015Q4

REPORT INFORMATION
  Report Type: Report from Study
  Country: US (occurrence: US)
  Receive Date: 20150929
  Receipt Date: 20151012
  Transmission Date: 20160304
  Serious: Yes (Death)
  Sender: FDA-Public Use
  Company Number: US-ACTELION-A-NJ2015-124527

PATIENT
  Age: 16 Year
  Sex: Male

DRUGS (8)
  1. TRACLEER [Suspect]
     Active Substance: BOSENTAN
     Indication: PULMONARY HYPERTENSION
     Dosage: 31.25 MG, BID
     Route: 048
     Dates: start: 20140829
  2. TRACLEER [Suspect]
     Active Substance: BOSENTAN
     Dosage: 62.5 MG, BID
     Route: 048
     Dates: end: 20150907
  3. ASPIRIN. [Concomitant]
     Active Substance: ASPIRIN
  4. EXJADE [Concomitant]
     Active Substance: DEFERASIROX
  5. SILDENAFIL. [Concomitant]
     Active Substance: SILDENAFIL
  6. KEPPRA [Concomitant]
     Active Substance: LEVETIRACETAM
  7. HYDROCODONE [Concomitant]
     Active Substance: HYDROCODONE
  8. FENTANYL. [Concomitant]
     Active Substance: FENTANYL
     Route: 062

REACTIONS (1)
  - Pulmonary hypertension [Fatal]

NARRATIVE: CASE EVENT DATE: 20150907
